FAERS Safety Report 6128495-6 (Version None)
Quarter: 2009Q1

REPORT INFORMATION
  Report Type: 
  Country: None (occurrence: None)
  Receive Date: 20090323
  Receipt Date: 20090319
  Transmission Date: 20090719
  Serious: Yes (Life-Threatening)
  Sender: FDA-Public Use
  Company Number: JP-ASTRAZENECA-2009AC00893

PATIENT
  Age: 60 Year
  Sex: Female
  Weight: 54 kg

DRUGS (11)
  1. PROPOFOL [Suspect]
     Indication: ANAESTHESIA
     Dosage: INDUCTION
     Route: 042
  2. PROPOFOL [Suspect]
     Dosage: MAINTENANCE
     Route: 042
  3. PROPRANOLOL [Suspect]
     Indication: HYPOTENSION
     Route: 042
  4. PROSTAGLANDIN E1 [Suspect]
     Indication: HYPOTENSION
     Dosage: TEMP STOPPED
     Route: 042
  5. PROSTAGLANDIN E1 [Suspect]
     Dosage: RE-STARTED 20 MINS LATER
     Route: 042
  6. FENTANYL-25 [Concomitant]
     Indication: ANAESTHESIA
     Route: 042
  7. FAMOTIDINE [Concomitant]
     Indication: PREMEDICATION
     Route: 048
  8. MEPERIDINE HCL [Concomitant]
     Indication: PREMEDICATION
     Route: 030
  9. MIDAZOLAM HCL [Concomitant]
     Indication: PREMEDICATION
  10. ATROPINE SULPHATE [Concomitant]
     Indication: PREMEDICATION
  11. VECURONIUM BROMIDE [Concomitant]

REACTIONS (1)
  - ARTERIOSPASM CORONARY [None]
